FAERS Safety Report 8979254 (Version 1)
Quarter: 2012Q4

REPORT INFORMATION
  Report Type: 
  Country: FR (occurrence: FR)
  Receive Date: 20121221
  Receipt Date: 20121221
  Transmission Date: 20130627
  Serious: Yes (Hospitalization)
  Sender: FDA-Public Use
  Company Number: FR-NOVOPROD-366955

PATIENT
  Age: 63 Year
  Sex: Male

DRUGS (8)
  1. VICTOZA [Suspect]
     Indication: TYPE 2 DIABETES MELLITUS
     Route: 058
     Dates: end: 20121009
  2. CRESTOR [Suspect]
     Indication: PRODUCT USED FOR UNKNOWN INDICATION
     Dosage: UNK
     Route: 048
     Dates: end: 20121011
  3. INSULATARD [Concomitant]
     Indication: TYPE 2 DIABETES MELLITUS
  4. ACTRAPID [Concomitant]
     Indication: TYPE 2 DIABETES MELLITUS
  5. KARDEGIC [Concomitant]
  6. LERCANIDIPINE [Concomitant]
  7. PLAVIX [Concomitant]
  8. INEXIUM /01479302/ [Concomitant]

REACTIONS (1)
  - Pancreatitis necrotising [Recovered/Resolved]
